FAERS Safety Report 6800704-7 (Version None)
Quarter: 2010Q2

REPORT INFORMATION
  Report Type: 
  Country: None (occurrence: None)
  Receive Date: 20100629
  Receipt Date: 20100617
  Transmission Date: 20101027
  Serious: Yes (Other)
  Sender: FDA-Public Use
  Company Number: FR-JNJFOC-20100600715

PATIENT
  Age: 55 Year
  Sex: Male
  Weight: 100 kg

DRUGS (16)
  1. REMICADE [Suspect]
     Indication: PSORIATIC ARTHROPATHY
     Dosage: 3RD INFUSION
     Route: 042
  2. REMICADE [Suspect]
     Dosage: 3RD INFUSION
     Route: 042
  3. REMICADE [Suspect]
     Dosage: 7TH INFUSION
     Route: 042
  4. REMICADE [Suspect]
     Dosage: 3RD INFUSION
     Route: 042
  5. REMICADE [Suspect]
     Dosage: 3RD INFUSION
     Route: 042
  6. REMICADE [Suspect]
     Dosage: 3RD INFUSION
     Route: 042
  7. REMICADE [Suspect]
     Dosage: 3RD INFUSION
     Route: 042
  8. REMICADE [Suspect]
     Indication: PSORIASIS
     Dosage: 3RD INFUSION
     Route: 042
  9. REMICADE [Suspect]
     Dosage: 7TH INFUSION
     Route: 042
  10. REMICADE [Suspect]
     Dosage: 3RD INFUSION
     Route: 042
  11. REMICADE [Suspect]
     Dosage: 3RD INFUSION
     Route: 042
  12. REMICADE [Suspect]
     Dosage: 3RD INFUSION
     Route: 042
  13. REMICADE [Suspect]
     Dosage: 3RD INFUSION
     Route: 042
  14. REMICADE [Suspect]
     Dosage: 3RD INFUSION
     Route: 042
  15. NEXIUM [Concomitant]
     Indication: GASTROOESOPHAGEAL REFLUX DISEASE
     Dosage: FOR GREATER THAT 5 YEARS
     Route: 048
  16. NONSTEROIDAL ANTI-INFLAMMATORY DRUGS [Concomitant]
     Indication: ARTHRALGIA
     Route: 048

REACTIONS (1)
  - GLOMERULONEPHRITIS [None]
